FAERS Safety Report 23659539 (Version 1)
Quarter: 2024Q1

REPORT INFORMATION
  Report Type: Spontaneous
  Country: US (occurrence: US)
  Receive Date: 20240321
  Receipt Date: 20240321
  Transmission Date: 20240410
  Serious: No
  Sender: FDA-Public Use
  Company Number: US-002147023-NVSC2024US061448

PATIENT
  Sex: Female

DRUGS (1)
  1. LEQVIO [Suspect]
     Active Substance: INCLISIRAN SODIUM
     Indication: Product used for unknown indication
     Dosage: UNK (284MG/1.5ML)
     Route: 065
     Dates: start: 202401

REACTIONS (4)
  - Fatigue [Unknown]
  - Back pain [Unknown]
  - Headache [Unknown]
  - Dizziness [Unknown]
